FAERS Safety Report 8578260-5 (Version None)
Quarter: 2012Q3

REPORT INFORMATION
  Report Type: 
  Country: None (occurrence: None)
  Receive Date: 20120808
  Receipt Date: 20120731
  Transmission Date: 20120928
  Serious: Yes (Hospitalization)
  Sender: FDA-Public Use
  Company Number: US-BAYER-2012-078905

PATIENT
  Age: 23 Year
  Sex: Female
  Weight: 82 kg

DRUGS (7)
  1. DARVOCET [Concomitant]
     Indication: PAIN
     Dosage: 1 TABLET EVERY 4 HOURS AS NEEDED
  2. ACETAMINOPHEN [Concomitant]
     Dosage: 650 MG, EVERY 4 HOURS AS NEEDED
  3. YAZ [Suspect]
     Dosage: UNK
  4. ASPIRIN [Concomitant]
     Indication: PAIN MANAGEMENT
     Dosage: 81 MG, UNK
  5. AUGMENTIN '500' [Concomitant]
     Indication: PNEUMONIA
     Dosage: 875 MG-125 MG, EVERY 12 HOURS
     Dates: start: 20100301
  6. HYDROCODONE BITARTRATE + ACETAMINOPHEN [Concomitant]
     Indication: PAIN
     Dosage: 325MG/5MG,1 TO 2 EVERY 4 HOURS AS NEEDED PAIN.
  7. DROSPIRENONE AND ETHINYL ESTRADIOL [Suspect]
     Dosage: UNK

REACTIONS (2)
  - DEEP VEIN THROMBOSIS [None]
  - PULMONARY EMBOLISM [None]
